FAERS Safety Report 19998373 (Version 1)
Quarter: 2021Q4

REPORT INFORMATION
  Report Type: Spontaneous
  Country: US (occurrence: US)
  Receive Date: 20211026
  Receipt Date: 20211026
  Transmission Date: 20220303
  Serious: No
  Sender: FDA-Public Use
  Company Number: US-GLAXOSMITHKLINE-USCH2021074089

PATIENT
  Sex: Female

DRUGS (5)
  1. ADVIL [Suspect]
     Active Substance: IBUPROFEN
     Indication: Pain
     Dosage: UNK
  2. ADVIL [Suspect]
     Active Substance: IBUPROFEN
     Indication: Muscle spasms
  3. ADVIL [Suspect]
     Active Substance: IBUPROFEN
     Indication: Nasopharyngitis
  4. ADVIL [Suspect]
     Active Substance: IBUPROFEN
     Indication: Abdominal pain upper
  5. ADVIL [Suspect]
     Active Substance: IBUPROFEN
     Indication: Toothache

REACTIONS (2)
  - Drug effective for unapproved indication [Unknown]
  - Product use in unapproved indication [Unknown]
